FAERS Safety Report 25814088 (Version 1)
Quarter: 2025Q3

REPORT INFORMATION
  Report Type: Spontaneous
  Country: IL (occurrence: IL)
  Receive Date: 20250917
  Receipt Date: 20250917
  Transmission Date: 20251020
  Serious: Yes (Hospitalization, Other)
  Sender: NOVO NORDISK
  Company Number: IL-NOVOPROD-1520171

PATIENT
  Age: 67 Year
  Sex: Male
  Weight: 75 kg

DRUGS (2)
  1. SEMAGLUTIDE [Suspect]
     Active Substance: SEMAGLUTIDE
     Indication: Type 2 diabetes mellitus
     Dosage: 1 MG, QW
  2. ASPIRIN [Concomitant]
     Active Substance: ASPIRIN
     Indication: Myocardial ischaemia
     Dosage: 100 MG, QD

REACTIONS (11)
  - Suicidal behaviour [Unknown]
  - Multiple organ dysfunction syndrome [Unknown]
  - Hypoglycaemia [Unknown]
  - Cholestasis [Unknown]
  - Duodenal ulcer [Unknown]
  - Melaena [Unknown]
  - Diarrhoea haemorrhagic [Unknown]
  - Pancreatolithiasis [Unknown]
  - Acute kidney injury [Unknown]
  - Anaemia [Unknown]
  - Intentional overdose [Unknown]
